FAERS Safety Report 18384677 (Version 1)
Quarter: 2020Q4

REPORT INFORMATION
  Report Type: Spontaneous
  Country: IT (occurrence: IT)
  Receive Date: 20201015
  Receipt Date: 20201015
  Transmission Date: 20210114
  Serious: Yes (Hospitalization)
  Sender: FDA-Public Use
  Company Number: NVSC2020IT274736

PATIENT
  Age: 63 Year
  Sex: Female

DRUGS (4)
  1. PREDNISON [Suspect]
     Active Substance: PREDNISONE
     Indication: COVID-19
     Dosage: 25 MG, QD (1/DAY)
     Route: 065
  2. PALMITOYLETHANOLAMIDE [Suspect]
     Active Substance: PALMIDROL
     Indication: COVID-19
     Dosage: 1200 MG, QD (1/DAY)
     Route: 065
  3. AZITHROMYCIN DIHYDRATE. [Interacting]
     Active Substance: AZITHROMYCIN DIHYDRATE
     Indication: COVID-19
     Dosage: 500 MG, QD (1/DAY)
     Route: 065
  4. HYDROXYCHLOROQUINE SULFATE. [Suspect]
     Active Substance: HYDROXYCHLOROQUINE SULFATE
     Indication: COVID-19
     Dosage: 200 MG, QD (1/DAY)
     Route: 048

REACTIONS (5)
  - Drug ineffective for unapproved indication [Unknown]
  - Drug interaction [Unknown]
  - Condition aggravated [Unknown]
  - Product use in unapproved indication [Unknown]
  - Off label use [Unknown]
